FAERS Safety Report 8155838-4 (Version None)
Quarter: 2012Q1

REPORT INFORMATION
  Report Type: 
  Country: None (occurrence: None)
  Receive Date: 20120215
  Receipt Date: 20120131
  Transmission Date: 20120608
  Serious: Yes (Hospitalization)
  Sender: FDA-Public Use
  Company Number: HX-PM-DE-120200001

PATIENT
  Age: 79 Year
  Sex: Male

DRUGS (4)
  1. NEBIVOLOL HCL [Concomitant]
  2. ASPIRIN [Concomitant]
  3. HEXCIX (HEXIX/CYSVIEW) (HEXAMINOLEVULINATE HYDROCHLORIDE) [Suspect]
     Dosage: 85 MG (85 MG, ONCE), INTRAVESICAL
     Route: 043
     Dates: start: 20120126
  4. ALLOPURINOL [Concomitant]

REACTIONS (2)
  - MORGANELLA TEST POSITIVE [None]
  - UROSEPSIS [None]
